FAERS Safety Report 11145113 (Version 1)
Quarter: 2015Q2

REPORT INFORMATION
  Report Type: Spontaneous
  Country: US (occurrence: None)
  Receive Date: 20150526
  Receipt Date: 20150526
  Transmission Date: 20150821
  Serious: No
  Sender: FDA-Public Use
  Company Number: None

PATIENT
  Age: 11 Year
  Sex: Female
  Weight: 61.24 kg

DRUGS (4)
  1. CEFDINIR. [Suspect]
     Active Substance: CEFDINIR
     Indication: EAR INFECTION
     Dosage: 1 CAPSULE TWICE DAILY TAKEN BY MOUTH
     Route: 048
     Dates: start: 20150521, end: 20150522
  2. AZITHROMYCIN [Suspect]
     Active Substance: AZITHROMYCIN ANHYDROUS
     Indication: EAR INFECTION
     Dosage: 2 PILLS DAY 1, 1 PILL FOR 4 DAYS, TAKEN BY MOUTH
     Route: 048
     Dates: start: 20150519, end: 20150520
  3. AZITHROMYCIN [Suspect]
     Active Substance: AZITHROMYCIN ANHYDROUS
     Indication: BRONCHITIS
     Dosage: 2 PILLS DAY 1, 1 PILL FOR 4 DAYS, TAKEN BY MOUTH
     Route: 048
     Dates: start: 20150519, end: 20150520
  4. CEFDINIR. [Suspect]
     Active Substance: CEFDINIR
     Indication: BRONCHITIS
     Dosage: 1 CAPSULE TWICE DAILY TAKEN BY MOUTH
     Route: 048
     Dates: start: 20150521, end: 20150522

REACTIONS (1)
  - Urticaria [None]

NARRATIVE: CASE EVENT DATE: 20150522
